FAERS Safety Report 7850569-X (Version None)
Quarter: 2011Q4

REPORT INFORMATION
  Report Type: 
  Country: None (occurrence: None)
  Receive Date: 20111026
  Receipt Date: 20111011
  Transmission Date: 20120403
  Serious: Yes (Hospitalization)
  Sender: FDA-Public Use
  Company Number: CA-ELI_LILLY_AND_COMPANY-CA201110003572

PATIENT
  Sex: Male

DRUGS (5)
  1. VIAGRA [Concomitant]
  2. KALETRA [Concomitant]
  3. RALTEGRAVIR [Concomitant]
     Dosage: UNK
     Dates: start: 20090219, end: 20091124
  4. ZYPREXA [Suspect]
     Indication: ANXIETY
  5. DIFLUCAN [Concomitant]

REACTIONS (2)
  - OFF LABEL USE [None]
  - PNEUMONIA [None]
